FAERS Safety Report 13476291 (Version 1)
Quarter: 2017Q2

REPORT INFORMATION
  Report Type: Spontaneous
  Country: US (occurrence: US)
  Receive Date: 20170424
  Receipt Date: 20170424
  Transmission Date: 20170830
  Serious: No
  Sender: FDA-Public Use
  Company Number: None

PATIENT
  Age: 56 Year
  Sex: Female
  Weight: 103.5 kg

DRUGS (11)
  1. QVAR [Concomitant]
     Active Substance: BECLOMETHASONE DIPROPIONATE
  2. MAGNESIUM [Concomitant]
     Active Substance: MAGNESIUM
  3. MULTIPLE VITAMIN [Concomitant]
     Active Substance: VITAMINS
  4. VITAMIN C [Concomitant]
     Active Substance: ASCORBIC ACID
  5. ASPIRIN. [Concomitant]
     Active Substance: ASPIRIN
  6. GABAPENTIN. [Concomitant]
     Active Substance: GABAPENTIN
  7. MEPIVICAINE [Suspect]
     Active Substance: MEPIVACAINE\MEPIVACAINE HYDROCHLORIDE
     Indication: DENTAL LOCAL ANAESTHESIA
     Dosage: ?          OTHER ROUTE:DENTAL PROCEDURE?
     Dates: start: 20160721
  8. BACLOFEN. [Suspect]
     Active Substance: BACLOFEN
  9. LIDOCAINE. [Suspect]
     Active Substance: LIDOCAINE
     Indication: DENTAL LOCAL ANAESTHESIA
     Dosage: ?          OTHER ROUTE:DENTAL PROCEDURE?
     Dates: start: 20160721
  10. VIT B [Concomitant]
     Active Substance: VITAMIN B
  11. ESTRADOIL [Concomitant]

REACTIONS (16)
  - Eyelid ptosis [None]
  - Dizziness [None]
  - Hypoaesthesia oral [None]
  - Inflammation [None]
  - Ear disorder [None]
  - Sensory loss [None]
  - Fatigue [None]
  - Hypotonia [None]
  - Hypoaesthesia [None]
  - Vision blurred [None]
  - Vth nerve injury [None]
  - Muscle spasms [None]
  - Choking sensation [None]
  - Feeling jittery [None]
  - Vibratory sense increased [None]
  - Injection site discomfort [None]

NARRATIVE: CASE EVENT DATE: 20160721
